FAERS Safety Report 24226190 (Version 1)
Quarter: 2024Q3

REPORT INFORMATION
  Report Type: Report from Study
  Country: US (occurrence: US)
  Receive Date: 20240820
  Receipt Date: 20240820
  Transmission Date: 20241016
  Serious: Yes (Hospitalization)
  Sender: ROCHE
  Company Number: US-ROCHE-10000052492

PATIENT
  Age: 71 Year
  Sex: Female

DRUGS (19)
  1. RITUXAN [Suspect]
     Active Substance: RITUXIMAB
     Indication: Rheumatoid arthritis
     Dosage: THEN CONTINUOUSLY EVERY 6 MONTH
     Route: 050
  2. ACETYLCYSTEINE [Concomitant]
     Active Substance: ACETYLCYSTEINE
     Indication: Chronic obstructive pulmonary disease
     Route: 048
  3. ALBUTEROL SULFATE [Concomitant]
     Active Substance: ALBUTEROL SULFATE
     Indication: Asthma
     Dosage: 1-2 PUFFS
  4. BIOTIN [Concomitant]
     Active Substance: BIOTIN
     Route: 048
  5. TUMS [Concomitant]
     Active Substance: CALCIUM CARBONATE
     Indication: Dyspepsia
  6. CELEBREX [Concomitant]
     Active Substance: CELECOXIB
     Indication: Pain
     Route: 048
  7. VITAMIN D3 [Concomitant]
     Active Substance: CHOLECALCIFEROL
  8. VITAMIN B12 [Concomitant]
     Active Substance: CYANOCOBALAMIN
  9. CEFIXIME [Concomitant]
     Active Substance: CEFIXIME
     Indication: Muscle spasms
     Route: 048
  10. DICLOFENAC SODIUM [Concomitant]
     Active Substance: DICLOFENAC\DICLOFENAC SODIUM
     Indication: Osteoarthritis
     Route: 061
  11. CYMBALTA [Concomitant]
     Active Substance: DULOXETINE HYDROCHLORIDE
     Indication: Anxiety
  12. PROTONIX [Concomitant]
     Active Substance: PANTOPRAZOLE SODIUM
     Indication: Dyspepsia
  13. CRESTOR [Concomitant]
     Active Substance: ROSUVASTATIN CALCIUM
     Indication: Hyperlipidaemia
  14. IMITREX [Concomitant]
     Active Substance: SUMATRIPTAN SUCCINATE
     Indication: Migraine
  15. THIAMINE [Concomitant]
     Active Substance: THIAMINE
  16. TOPAMAX [Concomitant]
     Active Substance: TOPIRAMATE
  17. TRAMADOL HYDROCHLORIDE [Concomitant]
     Active Substance: TRAMADOL HYDROCHLORIDE
     Indication: Pain
  18. ZINC GLUCONATE [Concomitant]
     Active Substance: ZINC GLUCONATE
  19. AMBIEN [Concomitant]
     Active Substance: ZOLPIDEM TARTRATE
     Indication: Insomnia

REACTIONS (6)
  - Illness [Recovered/Resolved]
  - Urinary tract infection [Recovered/Resolved]
  - Kidney infection [Recovered/Resolved]
  - Chills [Recovered/Resolved]
  - Pruritus [Recovered/Resolved]
  - Cystitis [Recovered/Resolved]
